FAERS Safety Report 9815359 (Version 1)
Quarter: 2014Q1

REPORT INFORMATION
  Report Type: Spontaneous
  Country: FR (occurrence: FR)
  Receive Date: 20140114
  Receipt Date: 20140114
  Transmission Date: 20141002
  Serious: Yes (Hospitalization, Other)
  Sender: FDA-Public Use
  Company Number: FR-ELI_LILLY_AND_COMPANY-FR201401000441

PATIENT
  Age: 57 Year
  Sex: Male

DRUGS (2)
  1. ALIMTA [Suspect]
     Indication: LUNG ADENOCARCINOMA
     Dosage: 700 MG, CYCLICAL
     Route: 042
     Dates: start: 20130211, end: 20130923
  2. CISPLATIN [Concomitant]
     Indication: LUNG ADENOCARCINOMA
     Dosage: UNK
     Dates: start: 20130211

REACTIONS (3)
  - Mania [Not Recovered/Not Resolved]
  - Metastases to central nervous system [Unknown]
  - Vasogenic cerebral oedema [Unknown]
